FAERS Safety Report 4991279-6 (Version None)
Quarter: 2006Q2

REPORT INFORMATION
  Report Type: 
  Country: None (occurrence: None)
  Receive Date: 20060428
  Receipt Date: 20060419
  Transmission Date: 20061013
  Serious: Yes (Hospitalization, Other)
  Sender: FDA-Public Use
  Company Number: 2006042396

PATIENT
  Age: 46 Year
  Sex: Male

DRUGS (4)
  1. XANAX [Suspect]
     Indication: ILL-DEFINED DISORDER
     Dosage: ORAL
     Route: 048
  2. PEG-INTRON [Suspect]
     Indication: HEPATITIS C
     Dosage: 150 MCG, 1 IN 1 WK), SUBCUTANEOUS
     Route: 058
     Dates: start: 20050721, end: 20060129
  3. REBETOL [Suspect]
     Indication: HEPATITIS C
     Dosage: 1200 MG, ORAL
     Route: 048
  4. AMBIEN [Suspect]
     Indication: INSOMNIA
     Dosage: 20 MG (20 MG, 1 IN 1 D), ORAL
     Route: 048

REACTIONS (13)
  - ABNORMAL BEHAVIOUR [None]
  - AGITATION [None]
  - AMNESIA [None]
  - ANXIETY [None]
  - ARTHRALGIA [None]
  - DEPRESSION [None]
  - HALLUCINATION, VISUAL [None]
  - INCORRECT DOSE ADMINISTERED [None]
  - INSOMNIA [None]
  - INTENTIONAL OVERDOSE [None]
  - MYALGIA [None]
  - SUICIDE ATTEMPT [None]
  - VIRAL INFECTION [None]
